FAERS Safety Report 4884286-5 (Version None)
Quarter: 2005Q4

REPORT INFORMATION
  Report Type: 
  Country: None (occurrence: None)
  Receive Date: 20051201
  Receipt Date: 20050906
  Transmission Date: 20060501
  Serious: No
  Sender: FDA-Public Use
  Company Number: 2005PV001710

PATIENT
  Age: 38 Year
  Sex: Female
  Weight: 115.2136 kg

DRUGS (4)
  1. BYETTA [Suspect]
     Indication: DIABETES MELLITUS
     Dosage: 5 MCG;BID;SC
     Route: 058
     Dates: start: 20050811
  2. ORAL CONTRACEPTIVE [Concomitant]
  3. PULMICORT [Concomitant]
  4. METFORMIN [Concomitant]

REACTIONS (3)
  - DECREASED APPETITE [None]
  - INJECTION SITE BRUISING [None]
  - WEIGHT DECREASED [None]
